FAERS Safety Report 13952222 (Version 2)
Quarter: 2018Q1

REPORT INFORMATION
  Report Type: Report from Study
  Country: US (occurrence: US)
  Receive Date: 20170911
  Receipt Date: 20180116
  Transmission Date: 20180508
  Serious: No
  Sender: FDA-Public Use
  Company Number: PHEH2017US029078

PATIENT
  Sex: Female

DRUGS (5)
  1. ILARIS [Suspect]
     Active Substance: CANAKINUMAB
     Dosage: EVERY 6 WEEKS
     Route: 065
     Dates: start: 20171119
  2. ILARIS [Suspect]
     Active Substance: CANAKINUMAB
     Dosage: EVERY 6 WEEKS
     Route: 065
     Dates: start: 20170712
  3. ILARIS [Suspect]
     Active Substance: CANAKINUMAB
     Indication: PRODUCT USED FOR UNKNOWN INDICATION
     Dosage: UNK
     Route: 065
  4. ILARIS [Suspect]
     Active Substance: CANAKINUMAB
     Dosage: EVERY 6 WEEKS
     Route: 065
     Dates: start: 20170901
  5. ILARIS [Suspect]
     Active Substance: CANAKINUMAB
     Dosage: EVERY 6 WEEKS
     Route: 065
     Dates: start: 20180110

REACTIONS (1)
  - Inappropriate schedule of drug administration [Unknown]
